FAERS Safety Report 21341143 (Version 1)
Quarter: 2022Q3

REPORT INFORMATION
  Report Type: Spontaneous
  Country: US (occurrence: US)
  Receive Date: 20220916
  Receipt Date: 20220916
  Transmission Date: 20221026
  Serious: Yes (Other)
  Sender: FDA-Public Use
  Company Number: US-LUPIN PHARMACEUTICALS INC.-2022-11092

PATIENT
  Age: 22 Year
  Sex: Female

DRUGS (5)
  1. VORICONAZOLE [Suspect]
     Active Substance: VORICONAZOLE
     Indication: Keratitis fungal
     Dosage: 200 MG, BID
     Route: 048
  2. VORICONAZOLE [Suspect]
     Active Substance: VORICONAZOLE
     Dosage: 100 MICROGRAM, INJECTION
  3. VORICONAZOLE [Suspect]
     Active Substance: VORICONAZOLE
     Dosage: 100 MICROGRAM, INJECTION, ADDITIONAL WEEK AND A HALF
  4. NATAMYCIN [Suspect]
     Active Substance: NATAMYCIN
     Indication: Keratitis fungal
     Dosage: UNK, 1% EVERY HOUR
     Route: 061
  5. PREDNISOLONE ACETATE [Concomitant]
     Active Substance: PREDNISOLONE ACETATE
     Indication: Ocular hyperaemia
     Dosage: UNK
     Route: 065

REACTIONS (2)
  - Drug ineffective for unapproved indication [Unknown]
  - Off label use [Unknown]
